FAERS Safety Report 7802862-4 (Version None)
Quarter: 2011Q4

REPORT INFORMATION
  Report Type: 
  Country: None (occurrence: None)
  Receive Date: 20111005
  Receipt Date: 20110926
  Transmission Date: 20120403
  Serious: Yes (Death, Life-Threatening)
  Sender: FDA-Public Use
  Company Number: 1056097

PATIENT
  Age: 3 Year
  Sex: Male
  Weight: 15.9 kg

DRUGS (16)
  1. ACYCLOVIR [Concomitant]
  2. ONDANSETRON [Concomitant]
  3. VITAMIN K TAB [Concomitant]
  4. ALEMTUZUMAB) [Concomitant]
  5. CYCLOSPORINE [Concomitant]
  6. ITRACONAZOLE [Concomitant]
  7. LANSOPRAZOLE [Concomitant]
  8. ALLOPURINOL [Concomitant]
  9. CIPROFLOXACIN [Concomitant]
  10. CYCLOPHOSPHAMIDE [Suspect]
     Indication: BONE MARROW FAILURE
     Dosage: 3180 MG TOTAL, INTRAVENOUS (NOT OTHERWISE SPECIFIED)
     Route: 042
     Dates: start: 20110107, end: 20110110
  11. (PENTAMIDINE) [Concomitant]
  12. BUSULFAN [Suspect]
     Indication: BONE MARROW FAILURE
     Dosage: 224 MG TOTAL, ORAL
     Route: 048
     Dates: start: 20110103, end: 20110106
  13. MESNA [Concomitant]
  14. PHENYTOIN [Concomitant]
  15. THIOTEPA [Concomitant]
  16. METHOTREXATE [Suspect]
     Indication: GRAFT VERSUS HOST DISEASE
     Dosage: 13.6 MG TOTAL, INTRAVENOUS (NOT OTHERWISE SPECIFIED)
     Route: 042
     Dates: start: 20110116, end: 20110119

REACTIONS (1)
  - VENOOCCLUSIVE LIVER DISEASE [None]
